FAERS Safety Report 7542536-0 (Version None)
Quarter: 2011Q2

REPORT INFORMATION
  Report Type: 
  Country: None (occurrence: None)
  Receive Date: 20110613
  Receipt Date: 20110601
  Transmission Date: 20111010
  Serious: Yes (Death, Disabling, Other)
  Sender: FDA-Public Use
  Company Number: JP-ROCHE-615862

PATIENT
  Sex: Male
  Weight: 60.9 kg

DRUGS (72)
  1. AVASTIN [Suspect]
     Route: 041
     Dates: start: 20070926, end: 20070926
  2. IRINOTECAN HCL [Suspect]
     Route: 041
     Dates: start: 20080101, end: 20080903
  3. FLUOROURACIL [Suspect]
     Dosage: ROUTE: INTRAVENOUS DRIP
     Route: 042
     Dates: start: 20070926, end: 20070927
  4. FLUOROURACIL [Suspect]
     Dosage: ROUTE: INTRAVENOUS BOLUS
     Route: 042
     Dates: start: 20071219, end: 20071220
  5. FLUOROURACIL [Suspect]
     Dosage: ROUTE: INTRAVENOUS DRIP
     Route: 042
     Dates: start: 20071219, end: 20071220
  6. FLUOROURACIL [Suspect]
     Dosage: ROUTE: INTRAVENOUS DRIP
     Route: 042
     Dates: start: 20080124, end: 20080125
  7. FLUOROURACIL [Suspect]
     Dosage: ROUTE: INTRAVENOUS BOLUS
     Route: 042
     Dates: start: 20080227, end: 20080228
  8. ERBITUX [Suspect]
     Indication: COLON CANCER METASTATIC
     Route: 041
  9. LOXONIN [Suspect]
     Dosage: OTHER INDICATION: LOW BACK PAIN.
     Route: 048
     Dates: start: 20081226, end: 20090108
  10. LEUCOVORIN CALCIUM [Concomitant]
     Route: 041
     Dates: start: 20070926, end: 20070927
  11. LEUCOVORIN CALCIUM [Concomitant]
     Route: 041
     Dates: start: 20080124, end: 20080125
  12. LEUCOVORIN CALCIUM [Concomitant]
     Route: 041
     Dates: start: 20080213, end: 20080214
  13. FAMOTIDINE [Concomitant]
     Route: 048
     Dates: start: 20071001, end: 20071130
  14. AVASTIN [Suspect]
     Route: 041
     Dates: start: 20071114, end: 20071114
  15. IRINOTECAN HCL [Suspect]
     Route: 041
     Dates: start: 20071114, end: 20071114
  16. FLUOROURACIL [Suspect]
     Dosage: ROUTE: INTRAVENOUS DRIP
     Route: 042
     Dates: start: 20080227, end: 20080228
  17. BETAMETHASONE [Suspect]
     Indication: PROPHYLAXIS
     Route: 048
     Dates: start: 20071001, end: 20071130
  18. LEUCOVORIN CALCIUM [Concomitant]
     Route: 041
     Dates: start: 20080227, end: 20080228
  19. AVASTIN [Suspect]
     Route: 041
     Dates: start: 20071031, end: 20071031
  20. AVASTIN [Suspect]
     Route: 041
     Dates: start: 20071219, end: 20071219
  21. AVASTIN [Suspect]
     Route: 041
     Dates: start: 20080227, end: 20080227
  22. IRINOTECAN HCL [Suspect]
     Route: 041
     Dates: start: 20071219, end: 20071219
  23. IRINOTECAN HCL [Suspect]
     Route: 041
     Dates: start: 20080109, end: 20080109
  24. FLUOROURACIL [Suspect]
     Dosage: ROUTE: INTRAVENOUS BOLUS.
     Route: 042
     Dates: start: 20071205, end: 20071206
  25. FLUOROURACIL [Suspect]
     Dosage: ROUTE: INTRAVENOUS DRIP
     Route: 042
     Dates: start: 20071205, end: 20071206
  26. LOXONIN [Suspect]
     Indication: WOUND COMPLICATION
     Dosage: OTHER INDICATION: LOW BACK PAIN.
     Route: 048
     Dates: start: 20070919, end: 20071130
  27. AVASTIN [Suspect]
     Route: 041
     Dates: start: 20080109, end: 20080109
  28. AVASTIN [Suspect]
     Route: 041
     Dates: start: 20080124, end: 20080124
  29. AVASTIN [Suspect]
     Route: 041
     Dates: start: 20080213, end: 20080213
  30. IRINOTECAN HCL [Suspect]
     Route: 041
     Dates: start: 20071010, end: 20071010
  31. IRINOTECAN HCL [Suspect]
     Route: 041
     Dates: start: 20080124, end: 20080124
  32. LEUCOVORIN CALCIUM [Concomitant]
     Route: 041
     Dates: start: 20071031, end: 20071101
  33. PRIMPERAN TAB [Concomitant]
     Route: 048
     Dates: start: 20071001, end: 20071130
  34. AVASTIN [Suspect]
     Route: 041
     Dates: start: 20071010, end: 20071010
  35. IRINOTECAN HCL [Suspect]
     Route: 041
     Dates: start: 20071031, end: 20071031
  36. IRINOTECAN HCL [Suspect]
     Route: 041
     Dates: start: 20071205, end: 20071205
  37. FLUOROURACIL [Suspect]
     Dosage: ROUTE: INTRAVENOUS BOLUS.
     Route: 042
     Dates: start: 20071031, end: 20071101
  38. FLUOROURACIL [Suspect]
     Dosage: ROUTE: INTRAVENOUS BOLUS
     Route: 042
     Dates: start: 20071114, end: 20071115
  39. FLUOROURACIL [Suspect]
     Dosage: ROUTE: INTRAVENOUS BOLUS
     Route: 042
     Dates: start: 20080124, end: 20080125
  40. FLUOROURACIL [Suspect]
     Dosage: ROUTE: INTRAVENOUS BOLUS
     Route: 042
     Dates: start: 20080101, end: 20080904
  41. BETAMETHASONE [Suspect]
     Route: 048
     Dates: start: 20081226, end: 20090108
  42. LEUCOVORIN CALCIUM [Concomitant]
     Route: 041
     Dates: start: 20071114, end: 20071115
  43. LEUCOVORIN CALCIUM [Concomitant]
     Route: 041
     Dates: start: 20080109, end: 20080110
  44. NOVOLIN N [Concomitant]
     Dosage: DOSAGE REGIMEN: 5 UT, 1 PER DAY.
     Route: 058
     Dates: start: 20071104, end: 20071130
  45. AVASTIN [Suspect]
     Route: 041
     Dates: start: 20071205, end: 20071205
  46. IRINOTECAN HCL [Suspect]
     Indication: COLON CANCER METASTATIC
     Route: 041
     Dates: start: 20070912, end: 20070912
  47. IRINOTECAN HCL [Suspect]
     Route: 041
     Dates: start: 20080227, end: 20080227
  48. FLUOROURACIL [Suspect]
     Dosage: ROUTE: INTRAVENOUS BOLUS
     Route: 042
     Dates: start: 20070926, end: 20070927
  49. FLUOROURACIL [Suspect]
     Dosage: ROUTE: INTRAVENOUS DRIP
     Route: 042
     Dates: start: 20071031, end: 20071101
  50. BETAMETHASONE [Suspect]
     Route: 048
     Dates: start: 20081114, end: 20081127
  51. LEUCOVORIN CALCIUM [Concomitant]
     Route: 041
     Dates: start: 20071010, end: 20071011
  52. MERISLON [Concomitant]
     Dosage: TAKEN ONE DOSE FORM.
     Route: 048
     Dates: start: 20070919, end: 20071130
  53. AVASTIN [Suspect]
     Indication: COLON CANCER METASTATIC
     Route: 041
     Dates: start: 20070912, end: 20070912
  54. IRINOTECAN HCL [Suspect]
     Route: 041
     Dates: start: 20070926, end: 20070926
  55. FLUOROURACIL [Suspect]
     Indication: COLON CANCER METASTATIC
     Dosage: ROUTE: INTRAVENOUS BOLUS
     Route: 042
     Dates: start: 20070912, end: 20070913
  56. FLUOROURACIL [Suspect]
     Dosage: ROUTE: INTRAVENOUS DRIP
     Route: 042
     Dates: start: 20070912, end: 20070913
  57. FLUOROURACIL [Suspect]
     Route: 042
     Dates: start: 20071114, end: 20071115
  58. FLUOROURACIL [Suspect]
     Dosage: ROUTE: INTRAVENOUS BOLUS
     Route: 042
     Dates: start: 20080213, end: 20080214
  59. LEUCOVORIN CALCIUM [Concomitant]
     Route: 041
     Dates: start: 20070912, end: 20070913
  60. LEUCOVORIN CALCIUM [Concomitant]
     Route: 041
     Dates: start: 20071205, end: 20071206
  61. ACTOS [Concomitant]
     Route: 048
     Dates: start: 20070214, end: 20071130
  62. AVASTIN [Suspect]
     Route: 041
     Dates: start: 20080101, end: 20080903
  63. IRINOTECAN HCL [Suspect]
     Route: 041
     Dates: start: 20080213, end: 20080213
  64. FLUOROURACIL [Suspect]
     Dosage: ROUTE: INTRAVENOUS BOLUS
     Route: 042
     Dates: start: 20071010, end: 20071011
  65. FLUOROURACIL [Suspect]
     Route: 042
     Dates: start: 20071010, end: 20071011
  66. FLUOROURACIL [Suspect]
     Dosage: ROUTE: INTRAVENOUS BOLUS
     Route: 042
     Dates: start: 20080109, end: 20080110
  67. FLUOROURACIL [Suspect]
     Dosage: ROUTE: INTRAVENOUS DRIP
     Route: 042
     Dates: start: 20080109, end: 20080110
  68. FLUOROURACIL [Suspect]
     Dosage: ROUTE: INTRAVENOUS DRIP
     Route: 042
     Dates: start: 20080213, end: 20080214
  69. LOXONIN [Suspect]
     Dosage: OTHER INDICATION: LOW BACK PAIN.
     Route: 048
     Dates: start: 20080808, end: 20081127
  70. LEUCOVORIN CALCIUM [Concomitant]
     Route: 041
     Dates: start: 20071219, end: 20071220
  71. NOVORAPID [Concomitant]
     Dosage: DOSAGE REGIMEN: 18 UNITS, 3/1 DAY.
     Route: 058
     Dates: start: 20070405, end: 20071130
  72. LIPITOR [Concomitant]
     Route: 048
     Dates: start: 20071015, end: 20071130

REACTIONS (7)
  - DISEASE PROGRESSION [None]
  - LARGE INTESTINE PERFORATION [None]
  - DERMATITIS ACNEIFORM [None]
  - MALAISE [None]
  - PERITONITIS [None]
  - METASTASES TO BONE [None]
  - DECREASED APPETITE [None]
